FAERS Safety Report 7215247-9 (Version None)
Quarter: 2011Q1

REPORT INFORMATION
  Report Type: 
  Country: None (occurrence: None)
  Receive Date: 20110107
  Receipt Date: 20101229
  Transmission Date: 20110831
  Serious: Yes (Life-Threatening, Other)
  Sender: FDA-Public Use
  Company Number: US-PURDUE-USA-2010-0045472

PATIENT
  Sex: Male

DRUGS (2)
  1. OXYCONTIN [Suspect]
     Indication: PAIN
  2. OXYCONTIN [Suspect]
     Indication: SURGERY
     Dosage: 30 MG, TID

REACTIONS (3)
  - OVERDOSE [None]
  - PAIN [None]
  - SUICIDE ATTEMPT [None]
